FAERS Safety Report 9922535 (Version 1)
Quarter: 2014Q1

REPORT INFORMATION
  Report Type: Spontaneous
  Country: US (occurrence: US)
  Receive Date: 20140225
  Receipt Date: 20140225
  Transmission Date: 20141002
  Serious: No
  Sender: FDA-Public Use
  Company Number: US-ABBVIE-13P-163-1056160-00

PATIENT
  Sex: Male

DRUGS (2)
  1. ANDROGEL [Suspect]
     Indication: BLOOD TESTOSTERONE DECREASED
     Dosage: 1 5 GM PACKET + 1 2.5 GM PACKET.
     Route: 061
     Dates: start: 201301
  2. ANDROGEL [Suspect]
     Dosage: 5 GRAM PACKET APPROXIMATELY 2-2.5 YEARS
     Route: 061
     Dates: start: 2010, end: 2013

REACTIONS (4)
  - Blood testosterone decreased [Not Recovered/Not Resolved]
  - Anxiety [Not Recovered/Not Resolved]
  - Depression [Not Recovered/Not Resolved]
  - Alanine aminotransferase increased [Not Recovered/Not Resolved]
